FAERS Safety Report 6900044-1 (Version None)
Quarter: 2010Q3

REPORT INFORMATION
  Report Type: 
  Country: None (occurrence: None)
  Receive Date: 20100708
  Receipt Date: 20100317
  Transmission Date: 20110219
  Serious: Yes (Other)
  Sender: FDA-Public Use
  Company Number: 2010013243

PATIENT
  Age: 50 Year
  Sex: Female
  Weight: 77.6 kg

DRUGS (4)
  1. CHANTIX [Suspect]
     Indication: SMOKING CESSATION THERAPY
     Dosage: 0.5 MG, 1X/DAY, ORAL; 1.0 MG, 2X/DAY
     Route: 048
     Dates: start: 20100127, end: 20100227
  2. SIMVASTATIN [Concomitant]
  3. METFORMIN HCL [Concomitant]
  4. ADVAIR DISKUS 100/50 [Concomitant]

REACTIONS (6)
  - ANXIETY [None]
  - CHEST DISCOMFORT [None]
  - FEELING ABNORMAL [None]
  - FOOD INTERACTION [None]
  - PALPITATIONS [None]
  - TREMOR [None]
